FAERS Safety Report 13040491 (Version 1)
Quarter: 2016Q4

REPORT INFORMATION
  Report Type: Spontaneous
  Country: US (occurrence: US)
  Receive Date: 20161219
  Receipt Date: 20161219
  Transmission Date: 20170207
  Serious: Yes (Other)
  Sender: FDA-Public Use
  Company Number: US-SA-2015SA188954

PATIENT
  Sex: Male

DRUGS (3)
  1. PLAVIX [Suspect]
     Active Substance: CLOPIDOGREL BISULFATE
     Route: 065
  2. XARELTO [Suspect]
     Active Substance: RIVAROXABAN
     Route: 065
  3. TIKOSYN [Concomitant]
     Active Substance: DOFETILIDE

REACTIONS (1)
  - Cerebrovascular accident [Unknown]
